FAERS Safety Report 4835806-8 (Version None)
Quarter: 2005Q4

REPORT INFORMATION
  Report Type: 
  Country: None (occurrence: None)
  Receive Date: 20051117
  Receipt Date: 20051102
  Transmission Date: 20060501
  Serious: Yes (Hospitalization)
  Sender: FDA-Public Use
  Company Number: 2005-0008826

PATIENT
  Age: 48 Year
  Sex: Female

DRUGS (3)
  1. TENOFOVIR DISOPROXIL FUMARATE (TENOFOVIR DISOPROXIL FUMARATE) [Suspect]
     Indication: HIV INFECTION
     Dosage: 300 MG, 1 IN 1 D, ORAL
     Route: 048
     Dates: start: 20020709, end: 20051014
  2. DIDANOSINE ENTERIC COATED (DIDANOSINE) [Concomitant]
  3. KALETRA [Concomitant]

REACTIONS (1)
  - METABOLIC ACIDOSIS [None]
